FAERS Safety Report 6629571-1 (Version None)
Quarter: 2010Q1

REPORT INFORMATION
  Report Type: 
  Country: None (occurrence: None)
  Receive Date: 20100311
  Receipt Date: 20100301
  Transmission Date: 20100710
  Serious: Yes (Hospitalization, Other)
  Sender: FDA-Public Use
  Company Number: US-ABBOTT-10P-163-0629862-00

PATIENT
  Sex: Female
  Weight: 82.628 kg

DRUGS (1)
  1. HUMIRA [Suspect]
     Indication: CROHN'S DISEASE
     Dates: start: 20080204, end: 20080707

REACTIONS (3)
  - DRUG INEFFECTIVE [None]
  - HERNIA REPAIR [None]
  - ILEOSTOMY [None]
